FAERS Safety Report 17229017 (Version 1)
Quarter: 2019Q4

REPORT INFORMATION
  Report Type: Spontaneous
  Country: US (occurrence: US)
  Receive Date: 20191210
  Receipt Date: 20191210
  Transmission Date: 20200122
  Serious: Yes (Hospitalization)
  Sender: FDA-Public Use
  Company Number: None

PATIENT
  Age: 12 Year
  Sex: Male
  Weight: 57.7 kg

DRUGS (11)
  1. IBRUTINIB 140MG CAPSULES [Suspect]
     Active Substance: IBRUTINIB
     Indication: CHRONIC GRAFT VERSUS HOST DISEASE IN SKIN
     Route: 048
     Dates: start: 20191127, end: 20191203
  2. HYDROCORTISONE 1% EXTERNAL CREAM [Concomitant]
  3. LEVETIRACETAM 750 MG ORAL TABLET [Concomitant]
  4. AMLODIPINE BESYLATE 5 MG ORAL TABLET (NORVASC) [Concomitant]
  5. ENALAPRIL MALEATE 2.5 MG ORAL TABLET [Concomitant]
  6. FAMOTIDINE 20 MG ORAL TABLET [Concomitant]
  7. BASAGLAR KWIKPEN 100 UNIT/ML SUBCUTANEOUS SOLUTION PEN-INJECTOR [Concomitant]
  8. MAGNESIUM OXIDE 400 MG ORAL TABLET [Concomitant]
  9. MONTELUKAST SODIUM 5 MG ORAL TABLET CHEWABLE (SINGULAIR) [Concomitant]
  10. ALBUTEROL SULFATE (2.5MG/3ML) 0.083% INHALATION NEBULIZATION SOLUTION [Concomitant]
  11. HYDROXYZINE HCL - 25 MG ORAL TABLET [Concomitant]

REACTIONS (3)
  - Pyrexia [None]
  - Skin mass [None]
  - Rash erythematous [None]

NARRATIVE: CASE EVENT DATE: 20191202
